FAERS Safety Report 5009159-9 (Version None)
Quarter: 2006Q2

REPORT INFORMATION
  Report Type: 
  Country: None (occurrence: None)
  Receive Date: 20060518
  Receipt Date: 20060510
  Transmission Date: 20061013
  Serious: No
  Sender: FDA-Public Use
  Company Number: S06-USA-01636-01

PATIENT
  Age: 91 Year
  Sex: Male

DRUGS (2)
  1. NAMENDA [Suspect]
     Indication: DEMENTIA
  2. NAMENDA [Suspect]
     Indication: DEMENTIA

REACTIONS (2)
  - BILE DUCT STONE [None]
  - JAUNDICE [None]
